FAERS Safety Report 14777144 (Version 4)
Quarter: 2018Q2

REPORT INFORMATION
  Report Type: Spontaneous
  Country: DE (occurrence: DE)
  Receive Date: 20180419
  Receipt Date: 20180518
  Transmission Date: 20180711
  Serious: Yes (Hospitalization)
  Sender: FDA-Public Use
  Company Number: DE-BIOGEN-2018BI00555573

PATIENT
  Age: 38 Year
  Sex: Female

DRUGS (7)
  1. SATIVEX [Concomitant]
     Active Substance: NABIXIMOLS
     Indication: MUSCLE SPASTICITY
     Dosage: 2 PUFFS IN THE EVENING
     Route: 065
     Dates: start: 20170718
  2. LYRICA [Concomitant]
     Active Substance: PREGABALIN
     Dosage: 50MG  - 0 - 100 MG
     Route: 048
     Dates: start: 201505
  3. PANTOZOLE [Concomitant]
     Active Substance: PANTOPRAZOLE SODIUM
     Indication: GASTRIC DISORDER
     Dosage: IN THE EVENING
     Route: 048
     Dates: start: 20170822, end: 20180411
  4. L-THYROXINE [Concomitant]
     Active Substance: LEVOTHYROXINE
     Indication: HYPOTHYROIDISM
     Dosage: IN THE MORNING
     Route: 065
  5. LYRICA [Concomitant]
     Active Substance: PREGABALIN
     Indication: NEURALGIA
     Dosage: 50MG  - 0 - 100 MG
     Route: 048
     Dates: start: 201505
  6. TYSABRI [Suspect]
     Active Substance: NATALIZUMAB
     Indication: MULTIPLE SCLEROSIS
     Route: 042
     Dates: start: 201501, end: 20180411
  7. CETIRIZINE [Concomitant]
     Active Substance: CETIRIZINE HYDROCHLORIDE
     Indication: RHINITIS ALLERGIC
     Dosage: 1 -0 -1 -0
     Route: 048

REACTIONS (1)
  - Hepatitis E [Not Recovered/Not Resolved]

NARRATIVE: CASE EVENT DATE: 20180411
